FAERS Safety Report 24274946 (Version 1)
Quarter: 2024Q3

REPORT INFORMATION
  Report Type: Spontaneous
  Country: JP (occurrence: JP)
  Receive Date: 20240902
  Receipt Date: 20240902
  Transmission Date: 20241017
  Serious: Yes (Other)
  Sender: MERCK
  Company Number: JP-MSD-2408JPN003830J

PATIENT
  Age: 94 Year
  Sex: Male

DRUGS (2)
  1. STROMECTOL [Suspect]
     Active Substance: IVERMECTIN
     Dosage: UNK UNK, ONCE
     Route: 048
     Dates: start: 20240822, end: 20240822
  2. STROMECTOL [Suspect]
     Active Substance: IVERMECTIN
     Dosage: UNK UNK, ONCE
     Route: 048
     Dates: start: 20240827, end: 20240827

REACTIONS (4)
  - Hallucination, visual [Unknown]
  - Depressed level of consciousness [Unknown]
  - Tremor [Unknown]
  - Product prescribing issue [Unknown]

NARRATIVE: CASE EVENT DATE: 20240827
